FAERS Safety Report 8758080 (Version 2)
Quarter: 2013Q1

REPORT INFORMATION
  Report Type: Spontaneous
  Country: FR (occurrence: None)
  Receive Date: 20120813
  Receipt Date: 20121203
  Transmission Date: 20140127
  Serious: Yes (Hospitalization)
  Sender: FDA-Public Use
  Company Number: 7151224

PATIENT
  Age: 51 Year
  Sex: Female

DRUGS (3)
  1. LEVOTHYROX [Suspect]
     Indication: HYPOTHYROIDISM
     Route: 048
     Dates: start: 20120703
  2. METEOSPASMYL [Suspect]
     Indication: ABDOMINAL DISTENSION
     Dosage: (1 DF, 3 IN 1 D)
     Route: 048
     Dates: start: 20120525, end: 20120707
  3. DEBRIDAT (TRIMEBUTINE MALEATE)(TRIMEBUTIN MALE ATE) [Concomitant]

REACTIONS (3)
  - Hepatitis [None]
  - Cholelithiasis [None]
  - Autoimmune disorder [None]
